FAERS Safety Report 5487548-6 (Version None)
Quarter: 2007Q4

REPORT INFORMATION
  Report Type: 
  Country: None (occurrence: None)
  Receive Date: 20071016
  Receipt Date: 20071004
  Transmission Date: 20080405
  Serious: Yes (Other)
  Sender: FDA-Public Use
  Company Number: US-PFIZER INC-2007085165

PATIENT
  Sex: Male
  Weight: 79.545 kg

DRUGS (4)
  1. CHANTIX [Suspect]
     Indication: EX-SMOKER
     Route: 048
  2. AMIODARONE [Concomitant]
     Route: 048
  3. HYDROCODONE [Concomitant]
     Route: 048
  4. ANTIHYPERTENSIVES [Concomitant]

REACTIONS (2)
  - SURGERY [None]
  - VISION BLURRED [None]
